FAERS Safety Report 10220061 (Version 6)
Quarter: 2014Q3

REPORT INFORMATION
  Report Type: Spontaneous
  Country: JP (occurrence: JP)
  Receive Date: 20140605
  Receipt Date: 20140723
  Transmission Date: 20150326
  Serious: Yes (Hospitalization, Disabling)
  Sender: FDA-Public Use
  Company Number: JP-JNJFOC-20140600977

PATIENT
  Age: 33 Year
  Sex: Male

DRUGS (8)
  1. LAC-B [Concomitant]
     Active Substance: BIFIDOBACTERIUM SPP.
     Route: 048
  2. THIATON [Concomitant]
     Active Substance: TIQUIZIUM BROMIDE
     Route: 048
  3. PROGRAF [Concomitant]
     Active Substance: TACROLIMUS\TACROLIMUS ANHYDROUS
     Route: 048
  4. REMICADE [Suspect]
     Active Substance: INFLIXIMAB
     Indication: COLITIS ULCERATIVE
     Dosage: ON AN UNSPECIFIED YEAR IN 23-MAY (SIXTH DOSE)
     Route: 042
  5. REMICADE [Suspect]
     Active Substance: INFLIXIMAB
     Indication: COLITIS ULCERATIVE
     Route: 042
  6. MUCOSTA [Concomitant]
     Active Substance: REBAMIPIDE
     Route: 048
  7. MIYA-BM [Concomitant]
     Active Substance: CLOSTRIDIUM BUTYRICUM SPORES STRAIN M-55
     Route: 048
  8. METHYCOBAL [Concomitant]
     Active Substance: METHYLCOBALAMIN
     Route: 048

REACTIONS (2)
  - Multifocal motor neuropathy [Recovered/Resolved with Sequelae]
  - Enterocolitis bacterial [Unknown]

NARRATIVE: CASE EVENT DATE: 201306
